FAERS Safety Report 5132435-6 (Version None)
Quarter: 2006Q4

REPORT INFORMATION
  Report Type: 
  Country: None (occurrence: None)
  Receive Date: 20061017
  Receipt Date: 20061002
  Transmission Date: 20070319
  Serious: Yes (Hospitalization)
  Sender: FDA-Public Use
  Company Number: 2006PV022324

PATIENT
  Age: 44 Year
  Sex: Female

DRUGS (12)
  1. BYETTA [Suspect]
     Indication: DIABETES MELLITUS NON-INSULIN-DEPENDENT
     Dosage: SC
     Route: 058
     Dates: start: 20060628, end: 20060702
  2. LANTUS [Suspect]
     Indication: DIABETES MELLITUS NON-INSULIN-DEPENDENT
     Dosage: 37 UNITS; QD; SC
     Route: 058
     Dates: start: 19990101, end: 20060627
  3. LANTUS [Suspect]
     Indication: DIABETES MELLITUS NON-INSULIN-DEPENDENT
     Dosage: 37 UNITS; QD; SC
     Route: 058
     Dates: start: 20060702
  4. AVANDAMET [Suspect]
     Indication: DIABETES MELLITUS NON-INSULIN-DEPENDENT
     Dosage: PO
     Route: 048
     Dates: end: 20060721
  5. AVANDAMET [Suspect]
     Indication: DIABETES MELLITUS NON-INSULIN-DEPENDENT
     Dosage: PO
     Route: 048
     Dates: start: 20060628
  6. QUINAPRIL [Concomitant]
  7. CRESTOR [Concomitant]
  8. PAXIL [Concomitant]
  9. ZYRTEC [Concomitant]
  10. PRILOSEC [Concomitant]
  11. PROTONIX [Concomitant]
  12. FLUTICANSONE NASAL SPRAY [Concomitant]

REACTIONS (5)
  - DIABETIC KETOACIDOSIS [None]
  - ERYTHEMA [None]
  - PRURITUS [None]
  - SWELLING [None]
  - URTICARIA [None]
